FAERS Safety Report 20236135 (Version 1)
Quarter: 2021Q4

REPORT INFORMATION
  Report Type: Spontaneous
  Country: US (occurrence: US)
  Receive Date: 20211228
  Receipt Date: 20211228
  Transmission Date: 20220304
  Serious: No
  Sender: FDA-Public Use
  Company Number: US-CELLTRION INC.-2021US012849

PATIENT

DRUGS (3)
  1. TRUXIMA [Suspect]
     Active Substance: RITUXIMAB-ABBS
     Indication: Warm type haemolytic anaemia
     Dosage: 900 MG Q 7 DAYS
     Dates: start: 20210726
  2. TRUXIMA [Suspect]
     Active Substance: RITUXIMAB-ABBS
     Dosage: 900 MG Q 7 DAYS
     Dates: start: 20210802
  3. TRUXIMA [Suspect]
     Active Substance: RITUXIMAB-ABBS
     Dosage: 900 MG Q 7 DAYS
     Dates: start: 20210809

REACTIONS (1)
  - Off label use [Unknown]
